FAERS Safety Report 17794722 (Version 1)
Quarter: 2020Q2

REPORT INFORMATION
  Report Type: Spontaneous
  Country: ZA (occurrence: ZA)
  Receive Date: 20200515
  Receipt Date: 20200515
  Transmission Date: 20200714
  Serious: Yes (Other)
  Sender: FDA-Public Use
  Company Number: ZA-ASTRAZENECA-2019SF88773

PATIENT
  Sex: Male

DRUGS (10)
  1. AZOR [Concomitant]
     Active Substance: AMLODIPINE BESYLATE\OLMESARTAN MEDOXOMIL
  2. DORMONOCT [Concomitant]
     Active Substance: LOPRAZOLAM
     Dosage: AT NIGHT
  3. OMEPRAZOLE. [Concomitant]
     Active Substance: OMEPRAZOLE
  4. TRUSTAN [Suspect]
     Active Substance: ESOMEPRAZOLE
     Dosage: 40.0MG UNKNOWN
     Route: 048
  5. GAVISCON [Concomitant]
     Active Substance: ALUMINUM HYDROXIDE\MAGNESIUM CARBONATE
  6. RENNIES [Concomitant]
  7. PPI [Concomitant]
     Active Substance: UNSPECIFIED INGREDIENT
  8. TRUSTAN [Suspect]
     Active Substance: ESOMEPRAZOLE
     Dosage: RESUMED TREATMENT AND FINALLY ONE MONTH AGO DISCONTINUED 20.0MG UNKNOWN
     Route: 048
  9. TRUSTAN [Suspect]
     Active Substance: ESOMEPRAZOLE
     Dosage: REDUCED THE DOSE AS IT WAS HIGH AFTER TINNUTIS DEVELOPED TREATMENT WAS INTERRUPTED.20.0MG UNKNOWN
     Route: 048
  10. TRUSTAN [Suspect]
     Active Substance: ESOMEPRAZOLE
     Dosage: RESUMED TREATMENT AFTER TINNITUS WAS RECOVERED. INTERRUPTED AFTER ONE WEEK DUE TO URINARY SYMPTOM...
     Route: 048

REACTIONS (5)
  - Pollakiuria [Recovering/Resolving]
  - Tinnitus [Recovered/Resolved]
  - Micturition urgency [Recovering/Resolving]
  - Urinary incontinence [Recovering/Resolving]
  - Hypertension [Unknown]
